FAERS Safety Report 9290766 (Version 1)
Quarter: 2013Q2

REPORT INFORMATION
  Report Type: Spontaneous
  Country: US (occurrence: US)
  Receive Date: 20130515
  Receipt Date: 20130515
  Transmission Date: 20140414
  Serious: No
  Sender: FDA-Public Use
  Company Number: US-PFIZER INC-2013146245

PATIENT
  Age: 38 Year
  Sex: Female
  Weight: 68.03 kg

DRUGS (8)
  1. LEVOXYL [Suspect]
     Indication: HYPOTHYROIDISM
     Dosage: UNK, 1X/DAY
  2. LEVOXYL [Suspect]
     Indication: AUTOIMMUNE THYROIDITIS
     Dosage: 200 UG, 1X/DAY
  3. LEVOXYL [Suspect]
     Dosage: 100 UG, 1X/DAY
  4. LEVOXYL [Suspect]
     Dosage: 75 UG, 1X/DAY
  5. LEVOXYL [Suspect]
     Dosage: 50 UG, 1X/DAY
  6. LEVOXYL [Suspect]
     Dosage: 0.75 UG, 1X/DAY
  7. LEVOXYL [Suspect]
     Dosage: UNK
     Dates: end: 20130508
  8. CLARITIN [Concomitant]
     Indication: HYPERSENSITIVITY
     Dosage: 10 MG, UNK

REACTIONS (5)
  - Blood glucose fluctuation [Unknown]
  - Antibody test abnormal [Unknown]
  - False positive investigation result [Unknown]
  - Vitamin D deficiency [Unknown]
  - Alopecia [Unknown]
